FAERS Safety Report 18992479 (Version 1)
Quarter: 2021Q1

REPORT INFORMATION
  Report Type: Spontaneous
  Country: US (occurrence: US)
  Receive Date: 20210310
  Receipt Date: 20210310
  Transmission Date: 20210420
  Serious: No
  Sender: FDA-Public Use
  Company Number: US-ASTRAZENECA-2021A054066

PATIENT
  Sex: Male

DRUGS (1)
  1. FASENRA [Suspect]
     Active Substance: BENRALIZUMAB
     Dosage: 30.0MG UNKNOWN
     Route: 058

REACTIONS (6)
  - Oropharyngeal discomfort [Unknown]
  - Malaise [Unknown]
  - Chest discomfort [Unknown]
  - Pain in extremity [Unknown]
  - Hypertension [Unknown]
  - Pyrexia [Unknown]
